FAERS Safety Report 8756931 (Version 1)
Quarter: 2012Q4

REPORT INFORMATION
  Report Type: 
  Country: US (occurrence: US)
  Receive Date: 20120828
  Receipt Date: 20120828
  Transmission Date: 20130627
  Serious: Yes (Other)
  Sender: FDA-Public Use
  Company Number: US-BRISTOL-MYERS SQUIBB COMPANY-16883514

PATIENT

DRUGS (1)
  1. ONGLYZA TABS [Suspect]

REACTIONS (1)
  - Gastrostomy tube insertion [Unknown]
